FAERS Safety Report 25276889 (Version 1)
Quarter: 2025Q2

REPORT INFORMATION
  Report Type: Spontaneous
  Country: CN (occurrence: CN)
  Receive Date: 20250507
  Receipt Date: 20250507
  Transmission Date: 20250716
  Serious: Yes (Disabling)
  Sender: BAXTER
  Company Number: None

PATIENT
  Age: 3 Year
  Sex: Male

DRUGS (1)
  1. CYCLOPHOSPHAMIDE [Suspect]
     Active Substance: CYCLOPHOSPHAMIDE
     Indication: Acute myeloid leukaemia
     Dosage: 1G, QD, INJECTION
     Route: 041
     Dates: start: 20250420, end: 20250421

REACTIONS (5)
  - Electrocardiogram ST segment abnormal [Recovering/Resolving]
  - Oropharyngeal discomfort [Recovering/Resolving]
  - Sinus tachycardia [Recovering/Resolving]
  - Rash [Recovering/Resolving]
  - Chest discomfort [Recovering/Resolving]

NARRATIVE: CASE EVENT DATE: 20250420
